FAERS Safety Report 19950099 (Version 1)
Quarter: 2021Q4

REPORT INFORMATION
  Report Type: Spontaneous
  Country: US (occurrence: US)
  Receive Date: 20211013
  Receipt Date: 20211013
  Transmission Date: 20220303
  Serious: Yes (Other)
  Sender: FDA-Public Use
  Company Number: None

PATIENT
  Age: 36 Year
  Sex: Male
  Weight: 99 kg

DRUGS (5)
  1. RUBBING ALCOHOL 91 PERCENT ISOPROPYL [Suspect]
     Active Substance: ISOPROPYL ALCOHOL
     Indication: Antibiotic prophylaxis
     Dates: start: 20210601, end: 20210607
  2. 99% ISOPROPYL ALCOHOL [Suspect]
     Active Substance: ISOPROPYL ALCOHOL
     Indication: Antibiotic prophylaxis
     Dates: start: 20210601, end: 20210607
  3. ADDERALL [Concomitant]
     Active Substance: AMPHETAMINE ASPARTATE\AMPHETAMINE SULFATE\DEXTROAMPHETAMINE SACCHARATE\DEXTROAMPHETAMINE SULFATE
  4. ALLOPURINOL [Concomitant]
     Active Substance: ALLOPURINOL
  5. WHEY PROTEIN SHAKES [Concomitant]

REACTIONS (4)
  - Product colour issue [None]
  - Erythema [None]
  - Skin burning sensation [None]
  - Suspected product quality issue [None]

NARRATIVE: CASE EVENT DATE: 20210601
